FAERS Safety Report 25123576 (Version 1)
Quarter: 2025Q1

REPORT INFORMATION
  Report Type: Spontaneous
  Country: US (occurrence: US)
  Receive Date: 20250326
  Receipt Date: 20250326
  Transmission Date: 20250408
  Serious: No
  Sender: GRIFOLS
  Company Number: US-IGSA-BIG0028814

PATIENT
  Sex: Male
  Weight: 101.13 kg

DRUGS (1)
  1. PROLASTIN-C LIQUID [Suspect]
     Active Substance: .ALPHA.1-PROTEINASE INHIBITOR HUMAN
     Indication: Alpha-1 antitrypsin deficiency
     Dosage: 6060 MILLIGRAM, Q.WK.
     Route: 042
     Dates: start: 20181206

REACTIONS (2)
  - Product distribution issue [Unknown]
  - Malaise [Unknown]
